FAERS Safety Report 6125243-0 (Version None)
Quarter: 2009Q1

REPORT INFORMATION
  Report Type: 
  Country: None (occurrence: None)
  Receive Date: 20090319
  Receipt Date: 20090319
  Transmission Date: 20090719
  Serious: Yes (Life-Threatening, Hospitalization)
  Sender: FDA-Public Use
  Company Number: None

PATIENT
  Age: 44 Year
  Sex: Female
  Weight: 77.1115 kg

DRUGS (2)
  1. ACYCLOVIR [Suspect]
     Indication: HERPES ZOSTER
     Dosage: 800 MG X ONCE IV 500 MG Q8 IV
     Route: 042
     Dates: start: 20090317, end: 20090318
  2. ACYCLOVIR [Suspect]
     Indication: HERPES ZOSTER
     Dosage: 800 MG X ONCE IV 500 MG Q8 IV
     Route: 042
     Dates: start: 20090316

REACTIONS (1)
  - RENAL FAILURE ACUTE [None]
